FAERS Safety Report 7108618-2 (Version None)
Quarter: 2010Q4

REPORT INFORMATION
  Report Type: 
  Country: None (occurrence: None)
  Receive Date: 20101117
  Receipt Date: 20101112
  Transmission Date: 20110411
  Serious: Yes (Hospitalization)
  Sender: FDA-Public Use
  Company Number: JP-SANOFI-AVENTIS-2010SA068948

PATIENT
  Sex: Female

DRUGS (2)
  1. AMARYL [Suspect]
     Route: 048
     Dates: start: 20100901, end: 20101110
  2. METFORMIN HCL [Concomitant]
     Route: 048
     Dates: start: 20100901, end: 20101110

REACTIONS (2)
  - FACE OEDEMA [None]
  - RASH [None]
